FAERS Safety Report 10784220 (Version 2)
Quarter: 2015Q1

REPORT INFORMATION
  Report Type: Spontaneous
  Country: RU (occurrence: RU)
  Receive Date: 20150211
  Receipt Date: 20150225
  Transmission Date: 20150721
  Serious: No
  Sender: FDA-Public Use
  Company Number: RU-ASTRAZENECA-2015SE11694

PATIENT

DRUGS (1)
  1. SYMBICORT [Suspect]
     Active Substance: BUDESONIDE\FORMOTEROL FUMARATE DIHYDRATE
     Dosage: 160/4.5 ONE INHALATION PER DAY
     Route: 055

REACTIONS (2)
  - Bronchospasm [Unknown]
  - Drug dose omission [Unknown]
